FAERS Safety Report 24708395 (Version 1)
Quarter: 2024Q4

REPORT INFORMATION
  Report Type: Spontaneous
  Country: IT (occurrence: IT)
  Receive Date: 20241207
  Receipt Date: 20241207
  Transmission Date: 20250114
  Serious: Yes (Death)
  Sender: CELLTRION
  Company Number: IT-ROCHE-3570377

PATIENT

DRUGS (4)
  1. TRASTUZUMAB [Suspect]
     Active Substance: TRASTUZUMAB
     Indication: Malignant neoplasm progression
     Dosage: UNK
     Route: 065
     Dates: start: 20220707
  2. CAPECITABINE [Suspect]
     Active Substance: CAPECITABINE
     Indication: Malignant neoplasm progression
     Dosage: 1000 MG, 2 WEEK
     Route: 048
     Dates: start: 20220729
  3. CAPECITABINE [Suspect]
     Active Substance: CAPECITABINE
     Dosage: 1000 MG, 2 WEEK (13/SEP/2022, SHE RECEIVED MOST RECENT DOSE)
     Route: 048
     Dates: start: 20220913
  4. PERTUZUMAB [Suspect]
     Active Substance: PERTUZUMAB
     Indication: Malignant neoplasm progression
     Dosage: UNK
     Route: 065
     Dates: start: 20220707

REACTIONS (1)
  - Disease progression [Fatal]

NARRATIVE: CASE EVENT DATE: 20221126
